FAERS Safety Report 17955886 (Version 1)
Quarter: 2020Q2

REPORT INFORMATION
  Report Type: Spontaneous
  Country: US (occurrence: US)
  Receive Date: 20200626
  Receipt Date: 20200626
  Transmission Date: 20200714
  Serious: Yes (Hospitalization)
  Sender: FDA-Public Use
  Company Number: None

PATIENT
  Age: 65 Year
  Sex: Male

DRUGS (11)
  1. PREDNISONE. [Concomitant]
     Active Substance: PREDNISONE
  2. MELOXICAM. [Concomitant]
     Active Substance: MELOXICAM
  3. OPSUMIT [Suspect]
     Active Substance: MACITENTAN
     Indication: PULMONARY HYPERTENSION
     Route: 048
     Dates: start: 201809
  4. SILDENAFIL. [Concomitant]
     Active Substance: SILDENAFIL
  5. TRAMADOL. [Concomitant]
     Active Substance: TRAMADOL
  6. ZOFRAN [Concomitant]
     Active Substance: ONDANSETRON HYDROCHLORIDE
  7. ATORVASTATIN [Concomitant]
     Active Substance: ATORVASTATIN
  8. REMODULIN [Concomitant]
     Active Substance: TREPROSTINIL
  9. MIRTAZAPINE. [Concomitant]
     Active Substance: MIRTAZAPINE
  10. ASPIRIN. [Concomitant]
     Active Substance: ASPIRIN
  11. ALBUTEROL HFA [Concomitant]
     Active Substance: ALBUTEROL SULFATE

REACTIONS (6)
  - Dyspnoea exertional [None]
  - Acute respiratory failure [None]
  - Pulmonary embolism [None]
  - Cardiac failure congestive [None]
  - Pleural effusion [None]
  - Dyspnoea [None]

NARRATIVE: CASE EVENT DATE: 20200525
